FAERS Safety Report 25606795 (Version 1)
Quarter: 2025Q3

REPORT INFORMATION
  Report Type: Spontaneous
  Country: US (occurrence: US)
  Receive Date: 20250725
  Receipt Date: 20250725
  Transmission Date: 20251021
  Serious: Yes (Hospitalization, Other)
  Sender: AMNEAL
  Company Number: US-AMNEAL PHARMACEUTICALS-2025-AMRX-02793

PATIENT
  Age: 77 Year
  Sex: Female

DRUGS (1)
  1. NITROFURANTOIN [Suspect]
     Active Substance: NITROFURANTOIN
     Indication: Urinary tract infection
     Route: 065

REACTIONS (6)
  - Interstitial lung disease [Recovered/Resolved]
  - Chronic respiratory failure [Unknown]
  - Sepsis [Unknown]
  - Pneumonia [Unknown]
  - Pneumothorax [Unknown]
  - Pneumomediastinum [Unknown]
